FAERS Safety Report 15096306 (Version 1)
Quarter: 2018Q2

REPORT INFORMATION
  Report Type: Spontaneous
  Country: US (occurrence: US)
  Receive Date: 20180610
  Receipt Date: 20180610
  Transmission Date: 20180711
  Serious: No
  Sender: FDA-Public Use
  Company Number: None

PATIENT
  Age: 30 Year
  Sex: Male
  Weight: 103.5 kg

DRUGS (3)
  1. OMEPRAZOLE. [Concomitant]
     Active Substance: OMEPRAZOLE
  2. AMOXICILLIN-CLAV, AMOXICILLIN 875MG AND CLAVULANIC ACID 125MG [Suspect]
     Active Substance: AMOXICILLIN\CLAVULANATE POTASSIUM
     Indication: SINUSITIS
     Dosage: ?          QUANTITY:1 DF DOSAGE FORM;?
     Route: 048
     Dates: start: 20180530, end: 20180608
  3. MAGNESIUM SUPPLEMENT [Concomitant]

REACTIONS (6)
  - Heart rate increased [None]
  - Poor quality sleep [None]
  - Insomnia [None]
  - Fatigue [None]
  - Nervous system disorder [None]
  - Headache [None]

NARRATIVE: CASE EVENT DATE: 20180608
